FAERS Safety Report 23529632 (Version 1)
Quarter: 2024Q1

REPORT INFORMATION
  Report Type: Spontaneous
  Country: DE (occurrence: DE)
  Receive Date: 20240216
  Receipt Date: 20240216
  Transmission Date: 20240410
  Serious: Yes (Death)
  Sender: FDA-Public Use
  Company Number: DE-ROCHE-3492793

PATIENT
  Age: 52 Year
  Sex: Male
  Weight: 103 kg

DRUGS (3)
  1. IRINOTECAN [Suspect]
     Active Substance: IRINOTECAN
     Indication: Neoplasm malignant
     Dosage: 200 MILLIGRAM/SQ. METER (ON 11/OCT/2023, RECEIVED MOST RECENT DOSE200 MG/M2, LAST DOSE ADMINISTERED
     Route: 042
     Dates: start: 20230718
  2. BEVACIZUMAB [Suspect]
     Active Substance: BEVACIZUMAB
     Indication: Neoplasm malignant
     Dosage: 7.5 MILLIGRAM/SQ. METER (ON 11/OCT/2023, RECEIVED MOST RECENT DOSE7.5 MG/KG, LAST DOSE ADMINISTERED
     Route: 042
     Dates: start: 20230718
  3. CAPECITABINE [Suspect]
     Active Substance: CAPECITABINE
     Indication: Neoplasm malignant
     Dosage: 800 MILLIGRAM/SQ. METER (ON 24/OCT/2023, RECEIVED MOST RECENT DOSE800 MG/M2, LAST DOSE ADMINISTERED
     Route: 048
     Dates: start: 20230718

REACTIONS (1)
  - Dyspnoea [Fatal]

NARRATIVE: CASE EVENT DATE: 20231028
